FAERS Safety Report 15189742 (Version 3)
Quarter: 2018Q3

REPORT INFORMATION
  Report Type: Report from Study
  Country: US (occurrence: US)
  Receive Date: 20180724
  Receipt Date: 20180920
  Transmission Date: 20181010
  Serious: No
  Sender: FDA-Public Use
  Company Number: PHEH2018US029795

PATIENT
  Sex: Female
  Weight: 49.9 kg

DRUGS (1)
  1. COSENTYX [Suspect]
     Active Substance: SECUKINUMAB
     Indication: PSORIASIS
     Route: 058
     Dates: start: 201806

REACTIONS (3)
  - Psoriasis [Unknown]
  - Dyspnoea [Unknown]
  - Drug ineffective [Unknown]
